FAERS Safety Report 5922630-8 (Version None)
Quarter: 2008Q3

REPORT INFORMATION
  Report Type: 
  Country: None (occurrence: None)
  Receive Date: 20080909
  Receipt Date: 20070821
  Transmission Date: 20090109
  Serious: Yes (Hospitalization, Other)
  Sender: FDA-Public Use
  Company Number: 163-20785-06020518

PATIENT
  Age: 83 Year
  Sex: Male
  Weight: 76.2043 kg

DRUGS (5)
  1. THALOMID [Suspect]
     Indication: MULTIPLE MYELOMA
     Dosage: 50 MG, 1 IN 1 D, ORAL, 100 MG, 1 IN 1 D, ORAL
     Route: 048
     Dates: start: 20060123, end: 20060201
  2. THALOMID [Suspect]
     Indication: MULTIPLE MYELOMA
     Dosage: 50 MG, 1 IN 1 D, ORAL, 100 MG, 1 IN 1 D, ORAL
     Route: 048
     Dates: start: 20060201, end: 20060220
  3. CALCITRIOL [Concomitant]
  4. VICODIN [Concomitant]
  5. WARFARIN SODIUM [Concomitant]

REACTIONS (8)
  - AMNESIA [None]
  - CONDITION AGGRAVATED [None]
  - CONSTIPATION [None]
  - DIZZINESS [None]
  - FATIGUE [None]
  - NAUSEA [None]
  - SOMNOLENCE [None]
  - THROMBOSIS [None]
